FAERS Safety Report 9688546 (Version 5)
Quarter: 2014Q2

REPORT INFORMATION
  Report Type: Report from Study
  Country: US (occurrence: US)
  Receive Date: 20131114
  Receipt Date: 20140408
  Transmission Date: 20141212
  Serious: Yes (Hospitalization, Disabling, Other)
  Sender: FDA-Public Use
  Company Number: US-JNJFOC-20131104227

PATIENT
  Age: 65 Year
  Sex: Male
  Weight: 93.9 kg

DRUGS (7)
  1. STELARA [Suspect]
     Indication: PSORIASIS
     Route: 058
     Dates: start: 20130124, end: 20130522
  2. AZOR [Concomitant]
     Indication: BLOOD PRESSURE
     Route: 065
  3. CRESTOR [Concomitant]
     Route: 065
  4. FENOFIBRATE [Concomitant]
     Indication: BLOOD TRIGLYCERIDES
     Route: 065
  5. ZYRTEC [Concomitant]
     Indication: HYPERSENSITIVITY
     Route: 065
  6. IRON [Concomitant]
     Indication: IRON DEFICIENCY
     Route: 065
  7. VITAMIN D [Concomitant]
     Indication: VITAMIN D DEFICIENCY
     Route: 065

REACTIONS (3)
  - Cerebrovascular accident [Recovering/Resolving]
  - Histoplasmosis [Recovering/Resolving]
  - Weight decreased [Not Recovered/Not Resolved]
